FAERS Safety Report 17388563 (Version 3)
Quarter: 2020Q3

REPORT INFORMATION
  Report Type: Spontaneous
  Country: US (occurrence: US)
  Receive Date: 20200207
  Receipt Date: 20200731
  Transmission Date: 20201102
  Serious: Yes (Hospitalization, Other)
  Sender: FDA-Public Use
  Company Number: US-PFIZER INC-2020050260

PATIENT
  Age: 79 Year
  Sex: Female

DRUGS (1)
  1. XELJANZ XR [Suspect]
     Active Substance: TOFACITINIB CITRATE
     Indication: RHEUMATOID ARTHRITIS
     Dosage: 11 MG, DAILY
     Route: 048
     Dates: start: 201910

REACTIONS (11)
  - Therapeutic product effect incomplete [Unknown]
  - Dizziness [Unknown]
  - Mass [Unknown]
  - Renal function test abnormal [Unknown]
  - Anaemia [Unknown]
  - Fall [Unknown]
  - Malaise [Unknown]
  - Depressed mood [Unknown]
  - Hip fracture [Unknown]
  - Head injury [Unknown]
  - Osteoarthritis [Unknown]

NARRATIVE: CASE EVENT DATE: 20200615
